FAERS Safety Report 9439187 (Version 1)
Quarter: 2013Q3

REPORT INFORMATION
  Report Type: Spontaneous
  Country: FR (occurrence: FR)
  Receive Date: 20130803
  Receipt Date: 20130803
  Transmission Date: 20140515
  Serious: Yes (Death)
  Sender: FDA-Public Use
  Company Number: FR-B.I. PHARMACEUTICALS,INC./RIDGEFIELD-2013-FF-02046FF

PATIENT
  Age: 77 Year
  Sex: Male

DRUGS (4)
  1. FAMPYRA [Concomitant]
     Dosage: 20 MG
     Route: 048
     Dates: start: 20130514, end: 20130703
  2. PRADAXA [Suspect]
     Dosage: 220 MG
     Route: 048
     Dates: start: 20130624
  3. CORDARONE [Suspect]
     Route: 048
     Dates: start: 20130621
  4. TEMERIT [Suspect]
     Dosage: 2.5 MG
     Route: 048
     Dates: start: 20130626

REACTIONS (1)
  - Subdural haematoma [Fatal]
